FAERS Safety Report 16970189 (Version 1)
Quarter: 2019Q4

REPORT INFORMATION
  Report Type: Spontaneous
  Country: US (occurrence: US)
  Receive Date: 20191029
  Receipt Date: 20191029
  Transmission Date: 20200122
  Serious: No
  Sender: FDA-Public Use
  Company Number: US-AMNEAL PHARMACEUTICALS-2019-AMRX-02235

PATIENT
  Sex: Male
  Weight: 88 kg

DRUGS (1)
  1. TESTOSTERONE. [Suspect]
     Active Substance: TESTOSTERONE
     Indication: HORMONE THERAPY
     Dosage: 2 PUMPS ON LEFT SHOULDER AND 2 PUMPS ON RIGHT SHOULDER
     Route: 061
     Dates: start: 201909

REACTIONS (1)
  - Therapeutic response decreased [Not Recovered/Not Resolved]
